FAERS Safety Report 4810963-8 (Version None)
Quarter: 2005Q4

REPORT INFORMATION
  Report Type: 
  Country: None (occurrence: None)
  Receive Date: 20051025
  Receipt Date: 20051011
  Transmission Date: 20060501
  Serious: Yes (Hospitalization)
  Sender: FDA-Public Use
  Company Number: MED-0003735

PATIENT
  Age: 62 Year
  Sex: Male
  Weight: 207.6 kg

DRUGS (8)
  1. ETHYOL [Suspect]
     Indication: RADIOTHERAPY
     Dosage: 500 MG, 5 IN 1 WK, SUBCUTANEOUS
     Route: 058
     Dates: start: 20050920, end: 20051007
  2. RADIATION THERAPY [Concomitant]
  3. FLUOROURACIL [Concomitant]
  4. CARBOPLATIN [Concomitant]
  5. DILANTIN [Concomitant]
  6. MORPHINE [Concomitant]
  7. MULTIVITAMINS (ERGOCALCIFEROL, ASCORBICV ACID, FOLIC ACID, THIAMINE HY [Concomitant]
  8. ZOFRAN [Concomitant]

REACTIONS (9)
  - BODY TEMPERATURE INCREASED [None]
  - CHILLS [None]
  - DEHYDRATION [None]
  - INJECTION SITE REACTION [None]
  - MUCOSAL INFLAMMATION [None]
  - NEUTROPENIA [None]
  - POST PROCEDURAL COMPLICATION [None]
  - PYREXIA [None]
  - RASH MACULO-PAPULAR [None]
